FAERS Safety Report 7304876-X (Version None)
Quarter: 2011Q1

REPORT INFORMATION
  Report Type: 
  Country: None (occurrence: None)
  Receive Date: 20110222
  Receipt Date: 20110214
  Transmission Date: 20110831
  Serious: Yes (Hospitalization, Other)
  Sender: FDA-Public Use
  Company Number: CA-US-EMD SERONO, INC.-230142J10CAN

PATIENT
  Sex: Female

DRUGS (3)
  1. REBIF [Suspect]
     Dates: start: 20100101
  2. REBIF [Suspect]
     Indication: MULTIPLE SCLEROSIS
     Dates: start: 20090814, end: 20100101
  3. HYDROCHLORATHIAZIDE [Concomitant]

REACTIONS (5)
  - BLOOD POTASSIUM DECREASED [None]
  - CELLULITIS [None]
  - MUSCLE SPASMS [None]
  - OVARIAN CYST [None]
  - ANXIETY [None]
